FAERS Safety Report 9269825 (Version 1)
Quarter: 2013Q2

REPORT INFORMATION
  Report Type: Spontaneous
  Country: US (occurrence: US)
  Receive Date: 20130503
  Receipt Date: 20130503
  Transmission Date: 20140414
  Serious: No
  Sender: FDA-Public Use
  Company Number: US-BAYER-2013-054649

PATIENT
  Sex: Female
  Weight: 72.56 kg

DRUGS (1)
  1. ALEVE CAPLET [Suspect]
     Indication: ARTHRITIS
     Dosage: 2 DF, TID
     Route: 048
     Dates: start: 20130422, end: 20130423

REACTIONS (3)
  - Incorrect dose administered [None]
  - Eyelid ptosis [Recovered/Resolved]
  - Drug ineffective [None]
